FAERS Safety Report 5922201-3 (Version None)
Quarter: 2008Q4

REPORT INFORMATION
  Report Type: 
  Country: None (occurrence: None)
  Receive Date: 20081017
  Receipt Date: 20081009
  Transmission Date: 20090506
  Serious: Yes (Other)
  Sender: FDA-Public Use
  Company Number: US-JNJFOC-20081002835

PATIENT
  Sex: Female
  Weight: 86.18 kg

DRUGS (3)
  1. ORTHO TRI-CYCLEN LO [Suspect]
     Indication: CONTRACEPTION
     Route: 048
  2. PAXIL [Concomitant]
     Indication: NERVOUSNESS
     Route: 048
  3. CORTISONE CREAM [Concomitant]
     Indication: RASH
     Route: 061

REACTIONS (6)
  - ABORTION SPONTANEOUS [None]
  - CYSTITIS [None]
  - DRUG EXPOSURE DURING PREGNANCY [None]
  - MENSTRUAL DISORDER [None]
  - MENSTRUATION IRREGULAR [None]
  - PREGNANCY ON ORAL CONTRACEPTIVE [None]
